FAERS Safety Report 8241810-2 (Version None)
Quarter: 2012Q1

REPORT INFORMATION
  Report Type: 
  Country: None (occurrence: None)
  Receive Date: 20120328
  Receipt Date: 20120321
  Transmission Date: 20120608
  Serious: Yes (Hospitalization)
  Sender: FDA-Public Use
  Company Number: GB-BRISTOL-MYERS SQUIBB COMPANY-16471575

PATIENT
  Age: 65 Year
  Sex: Male
  Weight: 61 kg

DRUGS (11)
  1. CARBOPLATIN [Suspect]
     Indication: SMALL CELL LUNG CANCER STAGE UNSPECIFIED
     Dosage: RECENT DOSE:2MAR2012
     Dates: start: 20111223
  2. LANSOPRAZOLE [Concomitant]
     Route: 048
     Dates: start: 20030619
  3. METFORMIN HCL [Concomitant]
     Route: 048
     Dates: start: 20000122
  4. ACETAMINOPHEN AND CODEINE PHOSPHATE [Concomitant]
     Dosage: 30MG / 50 MG
     Route: 048
     Dates: start: 20111130
  5. LOPERAMIDE [Concomitant]
     Route: 048
     Dates: start: 20120207
  6. ACETAMINOPHEN [Concomitant]
     Route: 048
     Dates: start: 20111213
  7. ETOPOSIDE [Suspect]
     Indication: SMALL CELL LUNG CANCER STAGE UNSPECIFIED
     Dosage: RECENT DOSE:2MAR2012
     Dates: start: 20111223
  8. IPILIMUMAB [Suspect]
     Indication: SMALL CELL LUNG CANCER STAGE UNSPECIFIED
     Dosage: RECENT DOSE:2MAR2012
     Dates: start: 20120302
  9. SIMVASTATIN [Concomitant]
     Route: 048
     Dates: start: 20051020
  10. ASPIRIN [Concomitant]
     Route: 048
     Dates: start: 19980731
  11. ZIMOVANE [Concomitant]
     Route: 048
     Dates: start: 20120216

REACTIONS (1)
  - PULMONARY EMBOLISM [None]
